FAERS Safety Report 13733964 (Version 9)
Quarter: 2019Q4

REPORT INFORMATION
  Report Type: Report from Study
  Country: JP (occurrence: JP)
  Receive Date: 20170708
  Receipt Date: 20191223
  Transmission Date: 20200122
  Serious: Yes (Other)
  Sender: FDA-Public Use
  Company Number: JP-AMGEN-JPNCT2015040603

PATIENT
  Age: 75 Year
  Sex: Male
  Weight: 70 kg

DRUGS (54)
  1. ROMIPLOSTIM [Suspect]
     Active Substance: ROMIPLOSTIM
     Dosage: 2 MICROGRAM/KILOGRAM, QD
     Route: 058
     Dates: start: 20150609, end: 20150609
  2. ARICEPT [Concomitant]
     Active Substance: DONEPEZIL HYDROCHLORIDE
     Dosage: UNK
     Route: 048
  3. TEGRETOL [Concomitant]
     Active Substance: CARBAMAZEPINE
     Indication: SEIZURE
     Dosage: UNK
     Route: 048
  4. PREDNISOLONE. [Concomitant]
     Active Substance: PREDNISOLONE
     Dosage: 16 MG, UNK
     Route: 048
     Dates: start: 20140304, end: 20140310
  5. TRAZENTA [Concomitant]
     Active Substance: LINAGLIPTIN
     Indication: DIABETES MELLITUS
     Dosage: UNK
     Route: 048
  6. ARICEPT [Concomitant]
     Active Substance: DONEPEZIL HYDROCHLORIDE
     Dosage: UNK
     Route: 048
  7. TEGRETOL [Concomitant]
     Active Substance: CARBAMAZEPINE
     Indication: SEIZURE
     Dosage: UNK
     Route: 048
  8. PREDNISOLONE. [Concomitant]
     Active Substance: PREDNISOLONE
     Dosage: 2 MG, UNK
     Route: 048
     Dates: start: 20140527, end: 20140609
  9. ROMIPLOSTIM [Suspect]
     Active Substance: ROMIPLOSTIM
     Dosage: 2 MICROGRAM/KILOGRAM, QWK
     Route: 058
     Dates: start: 20140930, end: 20140930
  10. ROMIPLOSTIM [Suspect]
     Active Substance: ROMIPLOSTIM
     Dosage: 2 MICROGRAM/KILOGRAM, Q4WK
     Route: 058
     Dates: start: 20140421, end: 20150519
  11. GLAKAY [Concomitant]
     Active Substance: MENATETRENONE
     Indication: IMMUNE THROMBOCYTOPENIC PURPURA
  12. PLETAAL [Concomitant]
     Active Substance: CILOSTAZOL
     Indication: DEMENTIA
     Dosage: UNK
     Route: 048
  13. PLETAAL [Concomitant]
     Active Substance: CILOSTAZOL
     Indication: CEREBRAL ISCHAEMIA
     Dosage: UNK
     Route: 048
  14. LYRICA [Concomitant]
     Active Substance: PREGABALIN
  15. ARICEPT [Concomitant]
     Active Substance: DONEPEZIL HYDROCHLORIDE
     Indication: DEMENTIA
     Dosage: UNK
     Route: 048
  16. PREDNISOLONE. [Concomitant]
     Active Substance: PREDNISOLONE
     Dosage: 14 MG, UNK
     Route: 048
     Dates: start: 20140311, end: 20140317
  17. REMINYL [Concomitant]
     Active Substance: GALANTAMINE
     Dosage: UNK
     Route: 048
  18. ROMIPLOSTIM [Suspect]
     Active Substance: ROMIPLOSTIM
     Dosage: 2 MICROGRAM/KILOGRAM, QD
     Route: 058
     Dates: start: 20150314, end: 20150314
  19. NEORAL [Concomitant]
     Active Substance: CYCLOSPORINE
     Indication: IMMUNE THROMBOCYTOPENIC PURPURA
     Dosage: 200 MG, UNK
     Route: 048
     Dates: start: 20140219, end: 20140331
  20. ARICEPT [Concomitant]
     Active Substance: DONEPEZIL HYDROCHLORIDE
     Dosage: UNK
     Route: 048
  21. PREDNISOLONE. [Concomitant]
     Active Substance: PREDNISOLONE
     Indication: IMMUNE THROMBOCYTOPENIC PURPURA
     Dosage: 2 MILLIGRAM
     Route: 048
     Dates: start: 20140225
  22. PREDNISOLONE. [Concomitant]
     Active Substance: PREDNISOLONE
     Indication: IMMUNE THROMBOCYTOPENIC PURPURA
     Dosage: 18 MG, UNK
     Route: 048
     Dates: start: 20140225, end: 20140303
  23. PREDNISOLONE. [Concomitant]
     Active Substance: PREDNISOLONE
     Dosage: 12 MG, UNK
     Route: 048
     Dates: start: 20140318, end: 20140324
  24. PREDNISOLONE. [Concomitant]
     Active Substance: PREDNISOLONE
     Dosage: 4 MG, UNK
     Route: 048
     Dates: start: 20140513, end: 20140526
  25. REMINYL [Concomitant]
     Active Substance: GALANTAMINE
     Dosage: UNK
     Route: 048
  26. ROMIPLOSTIM [Suspect]
     Active Substance: ROMIPLOSTIM
     Dosage: 2 MICROGRAM/KILOGRAM, QD
     Route: 058
     Dates: start: 20151006, end: 20151006
  27. ROMIPLOSTIM [Suspect]
     Active Substance: ROMIPLOSTIM
     Dosage: 2 MICROGRAM/KILOGRAM, QD
     Route: 058
     Dates: start: 20151110, end: 20151110
  28. ROMIPLOSTIM [Suspect]
     Active Substance: ROMIPLOSTIM
     Dosage: 2 MICROGRAM/KILOGRAM
     Route: 058
     Dates: start: 20151215
  29. MEMARY [Concomitant]
     Active Substance: MEMANTINE HYDROCHLORIDE
     Indication: DEMENTIA
     Dosage: UNK
     Route: 048
  30. LYRICA [Concomitant]
     Active Substance: PREGABALIN
     Indication: TRIGEMINAL NEURALGIA
     Dosage: UNK
     Route: 048
  31. ARICEPT [Concomitant]
     Active Substance: DONEPEZIL HYDROCHLORIDE
     Dosage: UNK
     Route: 048
  32. PREDNISOLONE. [Concomitant]
     Active Substance: PREDNISOLONE
     Dosage: 5 MG, UNK
     Route: 048
     Dates: start: 20140415, end: 20140512
  33. REMINYL [Concomitant]
     Active Substance: GALANTAMINE
     Indication: DEMENTIA
     Dosage: UNK
     Route: 048
  34. ROMIPLOSTIM [Suspect]
     Active Substance: ROMIPLOSTIM
     Indication: IMMUNE THROMBOCYTOPENIC PURPURA
     Dosage: 1 MICROGRAM, QWK
     Route: 058
     Dates: start: 20140311, end: 20140318
  35. ROMIPLOSTIM [Suspect]
     Active Substance: ROMIPLOSTIM
     Dosage: 2 MICROGRAM/KILOGRAM, Q4WK
     Route: 058
     Dates: start: 20150818, end: 20150915
  36. NEXIUM [Concomitant]
     Active Substance: ESOMEPRAZOLE MAGNESIUM
     Indication: PROPHYLAXIS
     Dosage: UNK
     Route: 048
  37. PLETAAL [Concomitant]
     Active Substance: CILOSTAZOL
     Indication: CEREBRAL INFARCTION
     Dosage: UNK
     Route: 048
  38. PREDNISOLONE. [Concomitant]
     Active Substance: PREDNISOLONE
     Dosage: 8 MG, UNK
     Route: 048
     Dates: start: 20140401, end: 20140407
  39. REMINYL [Concomitant]
     Active Substance: GALANTAMINE
     Indication: DEPRESSION
     Dosage: UNK
     Route: 048
  40. REMINYL [Concomitant]
     Active Substance: GALANTAMINE
     Dosage: UNK
     Route: 048
  41. LYRICA [Concomitant]
     Active Substance: PREGABALIN
     Indication: DIABETIC NEUROPATHY
     Dosage: UNK
     Route: 048
  42. TEGRETOL [Concomitant]
     Active Substance: CARBAMAZEPINE
     Dosage: UNK
     Route: 048
  43. PREDNISOLONE. [Concomitant]
     Active Substance: PREDNISOLONE
     Dosage: 10 MG, UNK
     Route: 048
     Dates: start: 20140325, end: 20140331
  44. ROMIPLOSTIM [Suspect]
     Active Substance: ROMIPLOSTIM
     Dosage: 2 MICROGRAM/KILOGRAM, QWK
     Route: 058
     Dates: start: 20140325, end: 20140916
  45. ROMIPLOSTIM [Suspect]
     Active Substance: ROMIPLOSTIM
     Dosage: 2 MICROGRAM/KILOGRAM, Q2WK
     Route: 058
     Dates: start: 20141111, end: 20141224
  46. PRIMOBOLAN-DEPOT [Suspect]
     Active Substance: METHENOLONE ENANTHATE
     Indication: IMMUNE THROMBOCYTOPENIC PURPURA
     Dosage: 20 MILLIGRAM
     Route: 048
     Dates: start: 20140401
  47. NEORAL [Concomitant]
     Active Substance: CYCLOSPORINE
     Indication: IMMUNE THROMBOCYTOPENIC PURPURA
  48. GLAKAY [Concomitant]
     Active Substance: MENATETRENONE
     Indication: IMMUNE THROMBOCYTOPENIC PURPURA
     Dosage: 45 MG, UNK
     Route: 048
     Dates: start: 20140401, end: 20140610
  49. MEMARY [Concomitant]
     Active Substance: MEMANTINE HYDROCHLORIDE
     Dosage: UNK
     Route: 048
  50. DEPAKENE-R [Concomitant]
     Active Substance: VALPROATE SODIUM
     Indication: DEMENTIA
     Dosage: UNK
     Route: 048
  51. LYRICA [Concomitant]
     Active Substance: PREGABALIN
     Indication: HYPOAESTHESIA
     Dosage: UNK
     Route: 048
  52. PREDNISOLONE. [Concomitant]
     Active Substance: PREDNISOLONE
     Dosage: 6 MG, UNK
     Route: 048
     Dates: start: 20140408, end: 20140414
  53. REMINYL [Concomitant]
     Active Substance: GALANTAMINE
     Dosage: UNK
     Route: 048
  54. REMINYL [Concomitant]
     Active Substance: GALANTAMINE
     Dosage: UNK
     Route: 048

REACTIONS (5)
  - Dementia [Not Recovered/Not Resolved]
  - Cerebral ischaemia [Recovered/Resolved]
  - Diabetic neuropathy [Recovered/Resolved]
  - Diabetes mellitus [Not Recovered/Not Resolved]
  - Liver disorder [Recovered/Resolved]

NARRATIVE: CASE EVENT DATE: 20140527
